FAERS Safety Report 7607535 (Version 4)
Quarter: 2013Q2

REPORT INFORMATION
  Report Type: Spontaneous
  Country: US (occurrence: US)
  Receive Date: 20100927
  Receipt Date: 20130410
  Transmission Date: 20140414
  Serious: Yes (Other)
  Sender: FDA-Public Use
  Company Number: US-ASTRAZENECA-2010SE24012

PATIENT
  Age: 77 Year
  Sex: Female

DRUGS (5)
  1. ARIMIDEX [Suspect]
     Route: 048
  2. NEXIUM [Suspect]
     Route: 048
     Dates: start: 2008
  3. NEXIUM [Suspect]
     Route: 048
     Dates: start: 2009
  4. NEXIUM [Suspect]
     Route: 048
  5. NEXIUM [Suspect]
     Route: 048

REACTIONS (5)
  - Endometrial cancer [Unknown]
  - Madarosis [Unknown]
  - Dysphagia [Unknown]
  - Alopecia [Unknown]
  - Circumstance or information capable of leading to medication error [Unknown]
